FAERS Safety Report 9580798 (Version 1)
Quarter: 2013Q4

REPORT INFORMATION
  Report Type: Spontaneous
  Country: US (occurrence: None)
  Receive Date: 20131001
  Receipt Date: 20131001
  Transmission Date: 20140711
  Serious: No
  Sender: FDA-Public Use
  Company Number: None

PATIENT
  Age: 61 Year
  Sex: Male
  Weight: 72.12 kg

DRUGS (1)
  1. CARISPRODOL [Suspect]
     Indication: MUSCLE SPASMS
     Dosage: 1 PILL PER DOSE
     Route: 048
     Dates: start: 20130823, end: 20130923

REACTIONS (3)
  - Product quality issue [None]
  - Product substitution issue [None]
  - Drug ineffective [None]
